FAERS Safety Report 7798642-9 (Version None)
Quarter: 2011Q4

REPORT INFORMATION
  Report Type: 
  Country: None (occurrence: None)
  Receive Date: 20111006
  Receipt Date: 20110927
  Transmission Date: 20120403
  Serious: Yes (Other)
  Sender: FDA-Public Use
  Company Number: US-BIOGENIDEC-2010BI041180

PATIENT
  Age: 44 Year
  Sex: Male

DRUGS (2)
  1. TYSABRI [Suspect]
     Indication: MULTIPLE SCLEROSIS
     Route: 042
     Dates: start: 20080417, end: 20100927
  2. TYSABRI [Suspect]
     Route: 042
     Dates: start: 20110822

REACTIONS (3)
  - PAIN IN EXTREMITY [None]
  - CONTUSION [None]
  - TESTIS CANCER [None]
